FAERS Safety Report 9370221 (Version 1)
Quarter: 2013Q2

REPORT INFORMATION
  Report Type: Spontaneous
  Country: GB (occurrence: GB)
  Receive Date: 20130626
  Receipt Date: 20130626
  Transmission Date: 20140414
  Serious: Yes (Death)
  Sender: FDA-Public Use
  Company Number: GB-TEVA-413593ISR

PATIENT
  Age: 85 Year
  Sex: Female
  Weight: 60 kg

DRUGS (7)
  1. ALENDRONIC ACID [Suspect]
     Indication: RENAL FAILURE CHRONIC
     Route: 048
  2. ADCAL-D3 [Concomitant]
     Route: 048
  3. BENDROFLUMETHIAZIDE [Concomitant]
     Route: 048
  4. NORTRIPTYLINE [Concomitant]
     Dosage: AT NIGHT
     Route: 048
  5. LISINOPRIL [Concomitant]
     Route: 048
  6. CO-CODAMOL [Concomitant]
     Dosage: 30MG CODEINE PHOSPHATE/500MG PARACETAMOL TAKEN AS NEEDED
     Route: 048
  7. LANSOPRAZOLE [Concomitant]
     Dosage: 30 MILLIGRAM DAILY;
     Dates: start: 20130509

REACTIONS (2)
  - Gastrointestinal haemorrhage [Fatal]
  - Oesophageal ulcer [Not Recovered/Not Resolved]
